FAERS Safety Report 4312014-0 (Version None)
Quarter: 2004Q1

REPORT INFORMATION
  Report Type: 
  Country: None (occurrence: None)
  Receive Date: 20040305
  Receipt Date: 20040218
  Transmission Date: 20041129
  Serious: Yes (Death)
  Sender: FDA-Public Use
  Company Number: 200410479JP

PATIENT
  Age: 70 Year
  Sex: Female
  Weight: 55 kg

DRUGS (2)
  1. BENAMBAX [Suspect]
     Indication: PNEUMOCYSTIS CARINII PNEUMONIA
     Route: 055
     Dates: start: 20040208, end: 20040214
  2. LASIX [Suspect]

REACTIONS (3)
  - GASTROINTESTINAL DISORDER [None]
  - INFLAMMATION [None]
  - PANCREATITIS HAEMORRHAGIC [None]
